FAERS Safety Report 6252740-X (Version None)
Quarter: 2009Q3

REPORT INFORMATION
  Report Type: 
  Country: None (occurrence: None)
  Receive Date: 20090701
  Receipt Date: 20090623
  Transmission Date: 20100115
  Serious: Yes (Other)
  Sender: FDA-Public Use
  Company Number: GB-AVENTIS-200915542GDDC

PATIENT
  Age: 18 Year
  Sex: Female
  Weight: 50 kg

DRUGS (3)
  1. TELFAST                            /01314201/ [Suspect]
     Route: 048
     Dates: start: 20090301, end: 20090511
  2. TELFAST                            /01314201/ [Suspect]
     Route: 048
     Dates: start: 20090301, end: 20090511
  3. NASONEX [Concomitant]

REACTIONS (4)
  - ANXIETY [None]
  - HALLUCINATION [None]
  - NERVOUSNESS [None]
  - THINKING ABNORMAL [None]
